FAERS Safety Report 9337225 (Version 1)
Quarter: 2013Q2

REPORT INFORMATION
  Report Type: Spontaneous
  Country: BR (occurrence: BR)
  Receive Date: 20130607
  Receipt Date: 20130607
  Transmission Date: 20140414
  Serious: Yes (Other)
  Sender: FDA-Public Use
  Company Number: BR-ELI_LILLY_AND_COMPANY-BR201305008190

PATIENT
  Age: 24 Year
  Sex: Male
  Weight: 90 kg

DRUGS (5)
  1. ZYPREXA [Suspect]
     Indication: ASPERGER^S DISORDER
     Dosage: 10 MG, BID
     Route: 048
     Dates: start: 2007
  2. ZYPREXA [Suspect]
     Dosage: 5 MG, QD
     Route: 048
  3. RIVOTRIL [Concomitant]
     Dosage: UNK, UNKNOWN
     Route: 065
  4. EPILENIL [Concomitant]
     Dosage: UNK, UNKNOWN
     Route: 065
  5. LEVOZINE [Concomitant]
     Dosage: UNK, UNKNOWN
     Route: 065

REACTIONS (5)
  - Epilepsy [Not Recovered/Not Resolved]
  - Aggression [Not Recovered/Not Resolved]
  - Weight increased [Not Recovered/Not Resolved]
  - Hypersomnia [Not Recovered/Not Resolved]
  - Off label use [Unknown]
